FAERS Safety Report 21956939 (Version 3)
Quarter: 2023Q2

REPORT INFORMATION
  Report Type: Spontaneous
  Country: US (occurrence: US)
  Receive Date: 20230206
  Receipt Date: 20230407
  Transmission Date: 20230722
  Serious: Yes (Hospitalization, Other)
  Sender: FDA-Public Use
  Company Number: US-BAYER-2023A011121

PATIENT
  Age: 46 Year
  Sex: Female

DRUGS (1)
  1. MIRENA [Suspect]
     Active Substance: LEVONORGESTREL
     Indication: Heavy menstrual bleeding
     Dosage: 20?G/DAY
     Route: 015
     Dates: start: 20220720, end: 20230120

REACTIONS (7)
  - Post procedural haemorrhage [Recovering/Resolving]
  - Device expulsion [Recovered/Resolved]
  - Heavy menstrual bleeding [Recovered/Resolved]
  - Weight increased [Recovered/Resolved]
  - Uterine leiomyoma [Recovered/Resolved]
  - Anxiety [Recovered/Resolved]
  - Device defective [None]

NARRATIVE: CASE EVENT DATE: 20220701
